FAERS Safety Report 6871446-7 (Version None)
Quarter: 2010Q3

REPORT INFORMATION
  Report Type: 
  Country: None (occurrence: None)
  Receive Date: 20100723
  Receipt Date: 20100716
  Transmission Date: 20110219
  Serious: Yes (Hospitalization)
  Sender: FDA-Public Use
  Company Number: US-SANOFI-AVENTIS-2010SA042141

PATIENT
  Sex: Male

DRUGS (3)
  1. LANTUS [Suspect]
     Route: 058
  2. NOVOLIN R [Suspect]
  3. PREDNISONE [Suspect]

REACTIONS (2)
  - DIABETIC HYPERGLYCAEMIC COMA [None]
  - HYPERGLYCAEMIA [None]
